FAERS Safety Report 4337731-8 (Version None)
Quarter: 2004Q2

REPORT INFORMATION
  Report Type: 
  Country: None (occurrence: None)
  Receive Date: 20040409
  Receipt Date: 19970409
  Transmission Date: 20050107
  Serious: Yes (Death, Life-Threatening, Hospitalization)
  Sender: FDA-Public Use
  Company Number: WAES 97052067

PATIENT
  Age: 9 Day
  Sex: Male

DRUGS (8)
  1. INDOCIN I.V. [Suspect]
     Indication: PATENT DUCTUS ARTERIOSUS
     Dosage: IV; 7 DOSE
     Route: 042
     Dates: start: 19961231, end: 19970206
  2. AMINOPHYLLINE [Concomitant]
  3. CEFMETAZOLE [Concomitant]
  4. CIMETIDINE HCL [Concomitant]
  5. DOPAMINE HCL [Concomitant]
  6. EPOETIN ALFA [Concomitant]
  7. GENTAMICIN [Concomitant]
  8. SODIUM BICARBONATE [Concomitant]

REACTIONS (7)
  - COAGULOPATHY [None]
  - GENERAL PHYSICAL HEALTH DETERIORATION [None]
  - HYPOGLYCAEMIA [None]
  - LEFT VENTRICULAR FAILURE [None]
  - PATENT DUCTUS ARTERIOSUS [None]
  - PULMONARY HAEMORRHAGE [None]
  - RENAL FAILURE [None]
